FAERS Safety Report 5360124-1 (Version None)
Quarter: 2007Q2

REPORT INFORMATION
  Report Type: 
  Country: None (occurrence: None)
  Receive Date: 20070618
  Receipt Date: 20070605
  Transmission Date: 20071010
  Serious: Yes (Hospitalization)
  Sender: FDA-Public Use
  Company Number: PHHO2007DE09444

PATIENT
  Age: 82 Year
  Sex: Female
  Weight: 85 kg

DRUGS (5)
  1. ZOLEDRONATE [Suspect]
     Indication: OSTEOPOROSIS
     Dosage: 5 MG, UNK
     Route: 042
     Dates: start: 20070313, end: 20070313
  2. ZOLEDRONATE [Suspect]
     Dosage: NO TREATMENT
     Dates: start: 20070314
  3. MARCUMAR [Concomitant]
     Indication: THROMBOSIS PROPHYLAXIS
  4. ALDACTAZINE [Concomitant]
     Indication: HYPERTENSION
  5. KETOPROFEN [Concomitant]
     Indication: OSTEOARTHRITIS

REACTIONS (7)
  - ARTHRALGIA [None]
  - C-REACTIVE PROTEIN INCREASED [None]
  - FALL [None]
  - MUSCULAR WEAKNESS [None]
  - MUSCULOSKELETAL PAIN [None]
  - POLYMYALGIA RHEUMATICA [None]
  - RED BLOOD CELL SEDIMENTATION RATE INCREASED [None]
